FAERS Safety Report 25683791 (Version 3)
Quarter: 2025Q3

REPORT INFORMATION
  Report Type: Spontaneous
  Country: JP (occurrence: JP)
  Receive Date: 20250814
  Receipt Date: 20250910
  Transmission Date: 20251021
  Serious: No
  Sender: MERCK SHARP & DOHME LLC
  Company Number: JP-009507513-2319526

PATIENT
  Age: 73 Year
  Sex: Male

DRUGS (1)
  1. LAGEVRIO [Suspect]
     Active Substance: MOLNUPIRAVIR
     Dosage: STRENGTH 400 MG. 800MG, BID
     Route: 048
     Dates: start: 20250802, end: 20250806

REACTIONS (1)
  - Cerumen impaction [Unknown]

NARRATIVE: CASE EVENT DATE: 20250801
